FAERS Safety Report 8048169-4 (Version None)
Quarter: 2012Q1

REPORT INFORMATION
  Report Type: 
  Country: None (occurrence: None)
  Receive Date: 20120117
  Receipt Date: 20120109
  Transmission Date: 20120608
  Serious: Yes (Hospitalization, Other)
  Sender: FDA-Public Use
  Company Number: US-BAYER-2010-001112

PATIENT
  Sex: Female
  Weight: 52.154 kg

DRUGS (7)
  1. SEASONIQUE [Concomitant]
  2. DROSPIRENONE AND ETHINYL ESTRADIOL [Suspect]
     Indication: CONTRACEPTION
     Dosage: UNK
     Dates: start: 20030101, end: 20100101
  3. IBUPROFEN (ADVIL) [Concomitant]
  4. YASMIN [Suspect]
     Indication: CONTRACEPTION
     Dosage: UNK
     Dates: start: 20030101, end: 20100101
  5. VALIUM [Concomitant]
  6. MULTIVITAMIN PREPARATION + MINERAL SUPPLEMENT [Concomitant]
  7. ZANTAC [Concomitant]

REACTIONS (3)
  - GALLBLADDER INJURY [None]
  - CHOLELITHIASIS [None]
  - CHOLECYSTITIS [None]
